FAERS Safety Report 9878919 (Version 2)
Quarter: 2014Q1

REPORT INFORMATION
  Report Type: Report from Study
  Country: US (occurrence: US)
  Receive Date: 20140206
  Receipt Date: 20140213
  Transmission Date: 20141002
  Serious: Yes (Other)
  Sender: FDA-Public Use
  Company Number: US-PFIZER INC-2014031012

PATIENT
  Age: 55 Year
  Sex: Male

DRUGS (6)
  1. FLUOROURACIL [Suspect]
     Indication: COLORECTAL CANCER
     Dosage: 3200 MG/M2, CYCLIC (ONE IN TWO WEEKS)
     Route: 042
     Dates: start: 20131007
  2. IRINOTECAN HCL [Suspect]
     Indication: COLORECTAL CANCER
     Dosage: 165 MG/M2, CYCLIC (ONE IN TWO WEEKS)
     Route: 042
     Dates: start: 20131007
  3. OXALIPLATIN [Suspect]
     Indication: COLORECTAL CANCER
     Dosage: 85 MG/M2, CYCLIC (ONE IN 4 WEEKS)
     Route: 042
     Dates: start: 20131007
  4. BEVACIZUMAB [Suspect]
     Indication: COLORECTAL CANCER
     Dosage: 5 MG/M2, CYCLIC (ONE IN TWO WEEKS)
     Route: 042
     Dates: start: 20131007
  5. LEUCOVORIN [Suspect]
     Indication: COLORECTAL CANCER
     Dosage: 200 MG/M2, CYCLIC (ONE IN TWO WEEKS)
     Route: 042
     Dates: start: 20131007
  6. COZAAR [Concomitant]
     Dosage: 50 MG, UNK
     Dates: start: 2006

REACTIONS (1)
  - Hypertension [Recovered/Resolved]
